FAERS Safety Report 23184961 (Version 4)
Quarter: 2024Q2

REPORT INFORMATION
  Report Type: Spontaneous
  Country: US (occurrence: US)
  Receive Date: 20231115
  Receipt Date: 20240614
  Transmission Date: 20240715
  Serious: Yes (Other)
  Sender: FDA-Public Use
  Company Number: US-BRISTOL-MYERS SQUIBB COMPANY-2023-161897

PATIENT
  Age: 65 Year
  Sex: Female

DRUGS (2)
  1. REVLIMID [Suspect]
     Active Substance: LENALIDOMIDE
     Indication: Bone cancer
     Route: 048
  2. REVLIMID [Suspect]
     Active Substance: LENALIDOMIDE
     Indication: Plasma cell myeloma
     Dosage: FREQUENCY: 3 WEEKS ON, 1 WEEK OFF
     Route: 048

REACTIONS (9)
  - COVID-19 [Recovering/Resolving]
  - Neuropathy peripheral [Recovering/Resolving]
  - Arthritis [Unknown]
  - Seasonal allergy [Unknown]
  - Neck pain [Unknown]
  - Arthralgia [Unknown]
  - Burning sensation [Unknown]
  - White blood cell count decreased [Unknown]
  - Change of bowel habit [Recovering/Resolving]
